FAERS Safety Report 7204281-0 (Version None)
Quarter: 2010Q4

REPORT INFORMATION
  Report Type: 
  Country: None (occurrence: None)
  Receive Date: 20101220
  Receipt Date: 20101207
  Transmission Date: 20110411
  Serious: Yes (Hospitalization)
  Sender: FDA-Public Use
  Company Number: 023196

PATIENT
  Sex: Male
  Weight: 84 kg

DRUGS (2)
  1. LACOSAMIDE [Suspect]
     Indication: EPILEPSY
     Dosage: (100 MG BID ORAL)
     Route: 048
     Dates: start: 20101011, end: 20101029
  2. ORFIRIL /00228501/ [Concomitant]

REACTIONS (2)
  - ATRIOVENTRICULAR BLOCK SECOND DEGREE [None]
  - SUPRAVENTRICULAR EXTRASYSTOLES [None]
